FAERS Safety Report 10648064 (Version 1)
Quarter: 2014Q4

REPORT INFORMATION
  Report Type: Spontaneous
  Country: US (occurrence: None)
  Receive Date: 20141211
  Receipt Date: 20141211
  Transmission Date: 20150529
  Serious: No
  Sender: FDA-Public Use
  Company Number: None

PATIENT

DRUGS (2)
  1. CROMOLYN SODIUM. [Suspect]
     Active Substance: CROMOLYN SODIUM
     Dosage: DOSAGE FORM: SOLUTION, ADM ROUTE: INHALATION, STRENGTH: 20 MG/2 ML, TYPE: AMPULE, SIZE: 2 ML?
     Route: 055
  2. CROMOLYN SODIUM. [Suspect]
     Active Substance: CROMOLYN SODIUM
     Dosage: DOSAGE FORM: CONCENTRATE, ADM ROUTE: ORAL, STRENGTH: 20 MG/ML, TYPE: AMPULE, SIZE: 5 ML
     Route: 048

REACTIONS (3)
  - Drug prescribing error [None]
  - Product packaging confusion [None]
  - Intercepted drug dispensing error [None]
